FAERS Safety Report 16065933 (Version 1)
Quarter: 2019Q1

REPORT INFORMATION
  Report Type: Spontaneous
  Country: US (occurrence: US)
  Receive Date: 20190313
  Receipt Date: 20190313
  Transmission Date: 20190418
  Serious: Yes (Other)
  Sender: FDA-Public Use
  Company Number: US-AUROBINDO-AUR-APL-2019-012488

PATIENT

DRUGS (1)
  1. METHYLPREDNISOLONE SODIUM SUCCINATE FOR INJECTION [Suspect]
     Active Substance: METHYLPREDNISOLONE SODIUM SUCCINATE
     Indication: ANTIINFLAMMATORY THERAPY
     Dosage: 80 MILLIGRAM, INJECTABLE CRYSTAL SUSPENSION 80 MG IN THE SUBACROMIAL SPACE OF THE RIGHT SHOULDER
     Route: 065

REACTIONS (2)
  - Suicidal ideation [Recovered/Resolved]
  - Substance-induced psychotic disorder [Recovered/Resolved]
